FAERS Safety Report 12958856 (Version 1)
Quarter: 2016Q4

REPORT INFORMATION
  Report Type: Spontaneous
  Country: US (occurrence: US)
  Receive Date: 20161117
  Receipt Date: 20161117
  Transmission Date: 20170207
  Serious: Yes (Hospitalization)
  Sender: FDA-Public Use
  Company Number: None

PATIENT
  Age: 32 Year
  Sex: Female

DRUGS (5)
  1. METHADONE [Suspect]
     Active Substance: METHADONE HYDROCHLORIDE
     Route: 048
  2. GABAPENTIN. [Concomitant]
     Active Substance: GABAPENTIN
  3. ALPRAZOLAM. [Suspect]
     Active Substance: ALPRAZOLAM
     Indication: ANXIETY
     Route: 048
     Dates: start: 20161005, end: 20161005
  4. CLONIDINE. [Concomitant]
     Active Substance: CLONIDINE
  5. CARISOPRODOL. [Concomitant]
     Active Substance: CARISOPRODOL

REACTIONS (4)
  - Suicide attempt [None]
  - Incorrect dose administered [None]
  - Hypotension [None]
  - Respiratory acidosis [None]

NARRATIVE: CASE EVENT DATE: 20161005
